FAERS Safety Report 9214823 (Version 1)
Quarter: 2013Q2

REPORT INFORMATION
  Report Type: Spontaneous
  Country: US (occurrence: US)
  Receive Date: 20130405
  Receipt Date: 20130405
  Transmission Date: 20140414
  Serious: Yes (Hospitalization)
  Sender: FDA-Public Use
  Company Number: US-BAYER-2013-042713

PATIENT
  Sex: Female

DRUGS (1)
  1. DOMEBORO POWDER PACKETS [Suspect]
     Dosage: 1 DOSE,  QD
     Route: 061

REACTIONS (2)
  - Skin disorder [None]
  - Tenderness [None]
